FAERS Safety Report 14201157 (Version 1)
Quarter: 2017Q4

REPORT INFORMATION
  Report Type: Spontaneous
  Country: US (occurrence: US)
  Receive Date: 20171117
  Receipt Date: 20171117
  Transmission Date: 20180321
  Serious: Yes (Death)
  Sender: FDA-Public Use
  Company Number: US-FRESENIUS KABI-FK201710028

PATIENT
  Age: 13 Year
  Sex: Female

DRUGS (17)
  1. TEMOZOLOMIDE. [Suspect]
     Active Substance: TEMOZOLOMIDE
     Indication: NEUROBLASTOMA
  2. EZN-2208 (PEGYLATED SN-38) [Suspect]
     Active Substance: FIRTECAN PEGOL
     Indication: NEUROBLASTOMA
  3. CISPLATIN. [Concomitant]
     Active Substance: CISPLATIN
     Indication: NEUROBLASTOMA
  4. CARBOPLATIN. [Concomitant]
     Active Substance: CARBOPLATIN
     Indication: NEUROBLASTOMA
  5. VINCRISTINE [Concomitant]
     Active Substance: VINCRISTINE
     Indication: NEUROBLASTOMA
  6. IRINOTECAN [Concomitant]
     Active Substance: IRINOTECAN
     Indication: NEUROBLASTOMA
  7. LENALIDOMIDE [Concomitant]
     Active Substance: LENALIDOMIDE
     Indication: NEUROBLASTOMA
  8. 3F8 ANTIBODY [Concomitant]
     Indication: NEUROBLASTOMA
  9. CYCLOPHOSPHAMIDE. [Suspect]
     Active Substance: CYCLOPHOSPHAMIDE
     Indication: NEUROBLASTOMA
  10. MELPHALAN. [Suspect]
     Active Substance: MELPHALAN
     Indication: NEUROBLASTOMA
  11. MLN8237, AN AURORA A KINASE INHIBITOR [Concomitant]
     Indication: NEUROBLASTOMA
  12. ETOPOSIDE (MANUFACTURER UNKNOWN) [Suspect]
     Active Substance: ETOPOSIDE
     Indication: NEUROBLASTOMA
     Route: 065
  13. DOXORUBICIN (MANUFACTURER UNKNOWN) [Suspect]
     Active Substance: DOXORUBICIN
     Indication: NEUROBLASTOMA
     Route: 065
  14. CIS-RETINOIC ACID [Concomitant]
     Active Substance: UNSPECIFIED INGREDIENT
     Indication: NEUROBLASTOMA
  15. CELECOXIB. [Concomitant]
     Active Substance: CELECOXIB
     Indication: NEUROBLASTOMA
  16. TOPOTECAN [Concomitant]
     Active Substance: TOPOTECAN HYDROCHLORIDE
     Indication: NEUROBLASTOMA
  17. IFOSFAMIDE. [Concomitant]
     Active Substance: IFOSFAMIDE
     Indication: NEUROBLASTOMA

REACTIONS (1)
  - Myelodysplastic syndrome [Fatal]
